FAERS Safety Report 12982034 (Version 1)
Quarter: 2016Q4

REPORT INFORMATION
  Report Type: Spontaneous
  Country: IR (occurrence: IR)
  Receive Date: 20161129
  Receipt Date: 20161129
  Transmission Date: 20170207
  Serious: Yes (Life-Threatening, Hospitalization, Other)
  Sender: FDA-Public Use
  Company Number: PHHY2016IR163266

PATIENT
  Age: 69 Year
  Sex: Female

DRUGS (1)
  1. AFINITOR [Suspect]
     Active Substance: EVEROLIMUS
     Indication: BREAST CANCER METASTATIC
     Dosage: 10 MG, UNK
     Route: 048
     Dates: start: 20160301, end: 20160913

REACTIONS (11)
  - Crepitations [Unknown]
  - Fatigue [Unknown]
  - Cyanosis [Unknown]
  - Palpitations [Unknown]
  - Interstitial lung disease [Recovered/Resolved]
  - Oedema peripheral [Unknown]
  - Arthralgia [Unknown]
  - Dyspnoea [Unknown]
  - Wheezing [Unknown]
  - Malaise [Unknown]
  - Arrhythmia [Unknown]

NARRATIVE: CASE EVENT DATE: 20160814
